FAERS Safety Report 15357202 (Version 1)
Quarter: 2018Q3

REPORT INFORMATION
  Report Type: Spontaneous
  Country: US (occurrence: US)
  Receive Date: 20180829
  Receipt Date: 20180829
  Transmission Date: 20181010
  Serious: Yes (Life-Threatening, Disabling, Other)
  Sender: FDA-Public Use
  Company Number: None

PATIENT
  Age: 47 Year
  Sex: Female
  Weight: 130.18 kg

DRUGS (6)
  1. DUONEB FOR NEBULIIZER [Concomitant]
  2. DULERA [Concomitant]
     Active Substance: FORMOTEROL FUMARATE DIHYDRATE\MOMETASONE FUROATE
  3. METRONIDAZOLE CREAM [Concomitant]
     Active Substance: METRONIDAZOLE
  4. FLUTICASONE PROPIONATE. [Suspect]
     Active Substance: FLUTICASONE PROPIONATE
     Indication: SEASONAL ALLERGY
     Dosage: ?          QUANTITY:2 DF DOSAGE FORM;?
     Route: 045
     Dates: start: 20180322, end: 20180425
  5. VENTOLIN HFA [Concomitant]
     Active Substance: ALBUTEROL SULFATE
  6. ALLERGY SHOTS [Concomitant]
     Active Substance: UNSPECIFIED INGREDIENT

REACTIONS (7)
  - Pain [None]
  - Dysgeusia [None]
  - Product contamination physical [None]
  - Recalled product [None]
  - Parosmia [None]
  - Emotional distress [None]
  - Haemorrhage [None]

NARRATIVE: CASE EVENT DATE: 20180322
